FAERS Safety Report 24924940 (Version 1)
Quarter: 2025Q1

REPORT INFORMATION
  Report Type: Spontaneous
  Country: CH (occurrence: CH)
  Receive Date: 20250204
  Receipt Date: 20250204
  Transmission Date: 20250408
  Serious: No
  Sender: EXELIXIS
  Company Number: CH-BRISTOL-MYERS SQUIBB COMPANY-2024-074236

PATIENT

DRUGS (11)
  1. CABOMETYX [Suspect]
     Active Substance: CABOZANTINIB S-MALATE
     Indication: Metastatic renal cell carcinoma
     Dates: start: 20231019
  2. CABOMETYX [Suspect]
     Active Substance: CABOZANTINIB S-MALATE
     Dates: start: 20231102
  3. CABOMETYX [Suspect]
     Active Substance: CABOZANTINIB S-MALATE
     Dates: start: 20231206
  4. CABOMETYX [Suspect]
     Active Substance: CABOZANTINIB S-MALATE
     Dates: start: 20231220
  5. OPDIVO [Suspect]
     Active Substance: NIVOLUMAB
     Indication: Metastatic renal cell carcinoma
     Dates: start: 20231019
  6. OPDIVO [Suspect]
     Active Substance: NIVOLUMAB
     Dates: start: 20231102
  7. OPDIVO [Suspect]
     Active Substance: NIVOLUMAB
     Dates: start: 20231206
  8. OPDIVO [Suspect]
     Active Substance: NIVOLUMAB
     Dates: start: 20231220
  9. OPDIVO [Suspect]
     Active Substance: NIVOLUMAB
     Dates: start: 20240104
  10. OPDIVO [Suspect]
     Active Substance: NIVOLUMAB
     Dates: start: 20240118
  11. OPDIVO [Suspect]
     Active Substance: NIVOLUMAB
     Dates: start: 20240201

REACTIONS (1)
  - Off label use [Unknown]
